FAERS Safety Report 9631189 (Version 1)
Quarter: 2013Q4

REPORT INFORMATION
  Report Type: Spontaneous
  Country: US (occurrence: US)
  Receive Date: 20131018
  Receipt Date: 20131018
  Transmission Date: 20140711
  Serious: Yes (Hospitalization)
  Sender: FDA-Public Use
  Company Number: US-JNJFOC-20131007865

PATIENT
  Age: 44 Year
  Sex: Female
  Weight: 81.65 kg

DRUGS (5)
  1. LEVAQUIN [Suspect]
     Indication: MEDICAL DEVICE REMOVAL
     Route: 042
     Dates: start: 20130921, end: 20130922
  2. LEVAQUIN [Suspect]
     Indication: MEDICAL DEVICE REMOVAL
     Route: 042
     Dates: start: 20130921, end: 20130922
  3. LEVOFLOXACIN [Suspect]
     Indication: MEDICAL DEVICE REMOVAL
     Route: 048
     Dates: start: 20130922, end: 20131001
  4. LEVOFLOXACIN [Suspect]
     Indication: MEDICAL DEVICE REMOVAL
     Route: 048
     Dates: start: 20130922, end: 20131001
  5. HYDROCODONE/ACETAMINOPHEN [Concomitant]
     Indication: PROCEDURAL PAIN
     Dosage: AS NEEDED
     Route: 048
     Dates: start: 20130921, end: 20130930

REACTIONS (5)
  - Musculoskeletal pain [Not Recovered/Not Resolved]
  - Insomnia [Not Recovered/Not Resolved]
  - Joint crepitation [Not Recovered/Not Resolved]
  - Myalgia [Not Recovered/Not Resolved]
  - Arthropathy [Not Recovered/Not Resolved]
